FAERS Safety Report 16780248 (Version 1)
Quarter: 2019Q3

REPORT INFORMATION
  Report Type: Report from Study
  Country: US (occurrence: US)
  Receive Date: 20190906
  Receipt Date: 20190906
  Transmission Date: 20191005
  Serious: No
  Sender: FDA-Public Use
  Company Number: US-EMD SERONO-9103478

PATIENT
  Age: 40 Year
  Sex: Female

DRUGS (1)
  1. MAVENCLAD [Suspect]
     Active Substance: CLADRIBINE
     Indication: MULTIPLE SCLEROSIS
     Dosage: FIRST WEEK THERAPY: PATIENT WAS PRESCRIBED TO TAKE TOTAL OF 70 MG FOR FIRST 5 DAYS.
     Route: 048
     Dates: start: 20190703

REACTIONS (4)
  - Headache [Recovering/Resolving]
  - Feeling abnormal [Unknown]
  - Hypophagia [Unknown]
  - Nausea [Recovered/Resolved]

NARRATIVE: CASE EVENT DATE: 201907
